FAERS Safety Report 8168492-2 (Version None)
Quarter: 2012Q1

REPORT INFORMATION
  Report Type: 
  Country: None (occurrence: None)
  Receive Date: 20120227
  Receipt Date: 20120227
  Transmission Date: 20120608
  Serious: No
  Sender: FDA-Public Use
  Company Number: None

PATIENT
  Sex: Male

DRUGS (2)
  1. VELCADE [Suspect]
     Indication: MULTIPLE MYELOMA
  2. DEXAMETHASONE [Concomitant]

REACTIONS (5)
  - INFLUENZA LIKE ILLNESS [None]
  - BACK PAIN [None]
  - HEADACHE [None]
  - RASH [None]
  - DRY SKIN [None]
